FAERS Safety Report 12565986 (Version 2)
Quarter: 2016Q3

REPORT INFORMATION
  Report Type: Spontaneous
  Country: DE (occurrence: DE)
  Receive Date: 20160718
  Receipt Date: 20160727
  Transmission Date: 20161109
  Serious: Yes (Other)
  Sender: FDA-Public Use
  Company Number: DE-GE HEALTHCARE MEDICAL DIAGNOSTICS-MYVW-PR-1607S-0053

PATIENT
  Age: 76 Year
  Sex: Female
  Weight: 70 kg

DRUGS (4)
  1. MYOVIEW [Suspect]
     Active Substance: TECHNETIUM TC-99M TETROFOSMIN
     Indication: ELECTROCARDIOGRAM CHANGE
     Dosage: DOSE NOT REPORTED
     Route: 042
     Dates: start: 20160705, end: 20160705
  2. TECHNETIUM TC-99M GENERATOR [Concomitant]
     Active Substance: TECHNETIUM TC-99M
  3. RAPISCAN [Concomitant]
     Active Substance: REGADENOSON
  4. MYOVIEW [Suspect]
     Active Substance: TECHNETIUM TC-99M TETROFOSMIN
     Indication: DIAGNOSTIC PROCEDURE
     Dosage: DOSE NOT REPORTED
     Route: 042
     Dates: start: 20160706, end: 20160706

REACTIONS (4)
  - Angina pectoris [Recovered/Resolved]
  - Muscle spasms [Recovered/Resolved]
  - Seizure [Recovered/Resolved]
  - Vertigo [Recovered/Resolved]

NARRATIVE: CASE EVENT DATE: 20160705
